FAERS Safety Report 9692973 (Version 1)
Quarter: 2013Q4

REPORT INFORMATION
  Report Type: Spontaneous
  Country: US (occurrence: None)
  Receive Date: 20131114
  Receipt Date: 20131114
  Transmission Date: 20140711
  Serious: No
  Sender: FDA-Public Use
  Company Number: DL2013-0819

PATIENT
  Age: 19 Year
  Sex: Female

DRUGS (3)
  1. MIFEPRISTONE TABLETS, 200 MG (DANCO LABS) [Suspect]
     Indication: ABORTION INDUCED
     Route: 048
     Dates: start: 20130606
  2. MISOPROSTOL TABLETS, 200 MCG [Suspect]
     Route: 002
  3. LEVOFLOXACIN [Concomitant]

REACTIONS (5)
  - Haemorrhage [None]
  - Vomiting [None]
  - Pyrexia [None]
  - Chills [None]
  - Muscle spasms [None]
